FAERS Safety Report 9463727 (Version 1)
Quarter: 2013Q3

REPORT INFORMATION
  Report Type: Report from Study
  Country: CH (occurrence: CH)
  Receive Date: 20130819
  Receipt Date: 20130819
  Transmission Date: 20140515
  Serious: Yes (Hospitalization, Other)
  Sender: FDA-Public Use
  Company Number: CH-ROCHE-1261835

PATIENT
  Sex: 0

DRUGS (4)
  1. DIAZEPAM [Suspect]
     Indication: SEDATION
     Route: 065
  2. MIDAZOLAM ROCHE UNSPEC. [Interacting]
     Indication: SEDATION
     Route: 065
  3. ZOLPIDEM [Interacting]
     Indication: SEDATION
     Route: 065
  4. PIPAMPERON [Interacting]
     Indication: SEDATION
     Route: 065

REACTIONS (8)
  - Coma [Unknown]
  - Mental impairment [Unknown]
  - Somnambulism [Unknown]
  - Somnolence [Unknown]
  - Confusional state [Unknown]
  - Fall [Unknown]
  - Gait disturbance [Unknown]
  - Alanine aminotransferase increased [Unknown]
